FAERS Safety Report 6811381-3 (Version None)
Quarter: 2010Q2

REPORT INFORMATION
  Report Type: 
  Country: None (occurrence: None)
  Receive Date: 20100630
  Receipt Date: 20100318
  Transmission Date: 20101027
  Serious: No
  Sender: FDA-Public Use
  Company Number: US-AMGEN-KDL401689

PATIENT
  Sex: Female
  Weight: 62.2 kg

DRUGS (13)
  1. PROCRIT [Suspect]
     Indication: ANAEMIA
     Dates: start: 20100301
  2. LANTUS [Concomitant]
     Dates: start: 20100301
  3. AMLODIPINE BESYLATE AND ATORVASTATIN CALIUM [Concomitant]
  4. LIPITOR [Concomitant]
  5. PAXIL [Concomitant]
  6. LISINOPRIL [Concomitant]
  7. LEVOTHYROXINE SODIUM [Concomitant]
  8. JANUVIA [Concomitant]
  9. GLYBURIDE [Concomitant]
  10. ZYPREXA [Concomitant]
  11. FERROUS SULFATE TAB [Concomitant]
     Route: 048
  12. OSCAL [Concomitant]
  13. VITAMIN D [Concomitant]

REACTIONS (1)
  - HAEMOGLOBIN INCREASED [None]
